FAERS Safety Report 7038803-X (Version None)
Quarter: 2010Q4

REPORT INFORMATION
  Report Type: 
  Country: None (occurrence: None)
  Receive Date: 20101012
  Receipt Date: 20101004
  Transmission Date: 20110411
  Serious: No
  Sender: FDA-Public Use
  Company Number: US-BIOGENIDEC-2010BI034694

PATIENT
  Age: 56 Year
  Sex: Female

DRUGS (4)
  1. TYSABRI [Suspect]
     Indication: MULTIPLE SCLEROSIS
     Route: 042
     Dates: start: 20070108, end: 20081030
  2. TYSABRI [Suspect]
     Route: 042
     Dates: start: 20100630
  3. COPAXONE [Concomitant]
  4. COPAXONE [Concomitant]

REACTIONS (2)
  - MULTIPLE SCLEROSIS [None]
  - VISUAL IMPAIRMENT [None]
